FAERS Safety Report 19167376 (Version 1)
Quarter: 2021Q2

REPORT INFORMATION
  Report Type: Spontaneous
  Country: US (occurrence: US)
  Receive Date: 20210420
  Receipt Date: 20210420
  Transmission Date: 20210717
  Serious: Yes (Hospitalization)
  Sender: FDA-Public Use
  Company Number: None

PATIENT
  Age: 65 Year
  Sex: Male

DRUGS (1)
  1. ASPIRIN/CITRIC ACID/SODIUM BICARBONATE (ASA 325MG/CITRIC ACID 1000MG/S [Suspect]
     Active Substance: ASPIRIN\CITRIC ACID MONOHYDRATE\SODIUM BICARBONATE
     Indication: DYSPEPSIA
     Dates: start: 20210202, end: 20210322

REACTIONS (4)
  - Gastric ulcer [None]
  - Oesophageal candidiasis [None]
  - Gastric haemorrhage [None]
  - Haematochezia [None]

NARRATIVE: CASE EVENT DATE: 20210322
